FAERS Safety Report 26043402 (Version 1)
Quarter: 2025Q4

REPORT INFORMATION
  Report Type: Report from Study
  Country: US (occurrence: US)
  Receive Date: 20251113
  Receipt Date: 20251113
  Transmission Date: 20260118
  Serious: Yes (Death, Hospitalization)
  Sender: ABBVIE
  Company Number: US-ABBVIE-6529789

PATIENT
  Age: 63 Year
  Sex: Male

DRUGS (3)
  1. VENCLEXTA [Suspect]
     Active Substance: VENETOCLAX
     Indication: Acute myeloid leukaemia
     Dosage: DAY 1, DOSE - 1 TABLET ON DAY 1
     Route: 048
     Dates: start: 20251016, end: 20251016
  2. VENCLEXTA [Suspect]
     Active Substance: VENETOCLAX
     Indication: Acute myeloid leukaemia
     Dosage: STOP DATE: OCT 2025?2 VENCLEXTA OF 100 MG ONCE DAILY
     Route: 048
     Dates: start: 20251017
  3. VENCLEXTA [Suspect]
     Active Substance: VENETOCLAX
     Indication: Acute myeloid leukaemia
     Dosage: 3 VENCLEXTA OF 100 MG ONCE DAILY, LAST ADMIN- 2025
     Route: 048
     Dates: start: 202510

REACTIONS (3)
  - Death [Fatal]
  - Hospitalisation [Unknown]
  - Hospitalisation [Recovered/Resolved]

NARRATIVE: CASE EVENT DATE: 20251001
